FAERS Safety Report 20579882 (Version 1)
Quarter: 2022Q1

REPORT INFORMATION
  Report Type: Report from Study
  Country: US (occurrence: US)
  Receive Date: 20220310
  Receipt Date: 20220310
  Transmission Date: 20220423
  Serious: Yes (Other)
  Sender: FDA-Public Use
  Company Number: US-SA-2022SA074024

PATIENT

DRUGS (1)
  1. CEMIPLIMAB [Suspect]
     Active Substance: CEMIPLIMAB
     Indication: HIV infection
     Dosage: 0.3 MG/KG, INFUSION
     Route: 041

REACTIONS (3)
  - Immune-mediated thyroiditis [Recovered/Resolved]
  - Hyperthyroidism [Recovered/Resolved]
  - Off label use [Recovered/Resolved]
